FAERS Safety Report 17722765 (Version 1)
Quarter: 2020Q2

REPORT INFORMATION
  Report Type: Spontaneous
  Country: US (occurrence: US)
  Receive Date: 20200429
  Receipt Date: 20200429
  Transmission Date: 20200714
  Serious: Yes (Death)
  Sender: FDA-Public Use
  Company Number: US-PFIZER INC-2020044222

PATIENT
  Age: 70 Year
  Sex: Female

DRUGS (2)
  1. REVATIO [Suspect]
     Active Substance: SILDENAFIL CITRATE
     Dosage: 60 MG, 3X/DAY {3 T TID (THREE TIMES A DAY)}
  2. REVATIO [Suspect]
     Active Substance: SILDENAFIL CITRATE
     Dosage: 40 MG, 3X/DAY(TAKE 2 TABLETS BY MOUTH THREE TIMES A DAY)
     Route: 048

REACTIONS (2)
  - Death [Fatal]
  - Off label use [Unknown]
